FAERS Safety Report 8304603-3 (Version None)
Quarter: 2012Q2

REPORT INFORMATION
  Report Type: 
  Country: None (occurrence: None)
  Receive Date: 20120423
  Receipt Date: 20120413
  Transmission Date: 20120825
  Serious: Yes (Other)
  Sender: FDA-Public Use
  Company Number: US-JNJFOC-20120406828

PATIENT
  Sex: Female
  Weight: 68.04 kg

DRUGS (4)
  1. XARELTO [Suspect]
     Indication: ATRIAL FIBRILLATION
     Route: 048
     Dates: start: 20120124
  2. AMLODIPINE [Concomitant]
     Indication: HYPERTENSION
     Route: 048
  3. METOPROLOL TARTRATE [Concomitant]
     Indication: HYPERTENSION
     Route: 048
     Dates: start: 19950101
  4. MULTAQ [Concomitant]
     Indication: CARDIAC DISORDER
     Route: 048
     Dates: start: 20120124

REACTIONS (5)
  - MYALGIA [None]
  - HEADACHE [None]
  - BIOPSY THYROID GLAND ABNORMAL [None]
  - HYPERTHYROIDISM [None]
  - INAPPROPRIATE SCHEDULE OF DRUG ADMINISTRATION [None]
